FAERS Safety Report 23978293 (Version 2)
Quarter: 2024Q2

REPORT INFORMATION
  Report Type: Other
  Country: JP (occurrence: JP)
  Receive Date: 20240614
  Receipt Date: 20240621
  Transmission Date: 20240716
  Serious: Yes (Other)
  Sender: FDA-Public Use
  Company Number: JP-UROVANT SCIENCES GMBH-202404-URV-000752

PATIENT
  Sex: Female

DRUGS (4)
  1. VIBEGRON [Suspect]
     Active Substance: VIBEGRON
     Indication: Hypertonic bladder
     Dosage: 50 MILLIGRAM, QD
     Route: 048
     Dates: start: 20240301, end: 20240331
  2. VIBEGRON [Suspect]
     Active Substance: VIBEGRON
     Indication: Pollakiuria
  3. CLENBUTEROL HYDROCHLORIDE [Concomitant]
     Active Substance: CLENBUTEROL HYDROCHLORIDE
     Indication: Stress urinary incontinence
     Dosage: 40 MICROGRAM, QD
     Route: 048
     Dates: start: 20240217
  4. CLENBUTEROL HYDROCHLORIDE [Concomitant]
     Active Substance: CLENBUTEROL HYDROCHLORIDE
     Dosage: 20 MICROGRAM, QD
     Route: 048
     Dates: start: 202402, end: 20240315

REACTIONS (1)
  - Alopecia [Unknown]

NARRATIVE: CASE EVENT DATE: 20240331
